FAERS Safety Report 8391631-5 (Version None)
Quarter: 2012Q2

REPORT INFORMATION
  Report Type: 
  Country: None (occurrence: None)
  Receive Date: 20120529
  Receipt Date: 20120524
  Transmission Date: 20120825
  Serious: Yes (Hospitalization)
  Sender: FDA-Public Use
  Company Number: US-AMGEN-USASP2012033127

PATIENT
  Age: 71 Year
  Sex: Female

DRUGS (1)
  1. ENBREL [Suspect]
     Indication: RHEUMATOID ARTHRITIS
     Dosage: 25 MG, Q3WK
     Dates: start: 19980101

REACTIONS (6)
  - CONTUSION [None]
  - DIZZINESS [None]
  - FALL [None]
  - SOFT TISSUE INJURY [None]
  - MUSCULOSKELETAL DISORDER [None]
  - WALKING AID USER [None]
